FAERS Safety Report 23561943 (Version 3)
Quarter: 2024Q1

REPORT INFORMATION
  Report Type: Spontaneous
  Country: PT (occurrence: PT)
  Receive Date: 20240225
  Receipt Date: 20240312
  Transmission Date: 20240410
  Serious: Yes (Hospitalization)
  Sender: FDA-Public Use
  Company Number: PT-JNJFOC-20240248746

PATIENT
  Age: 50 Year
  Sex: Female

DRUGS (1)
  1. TECVAYLI [Suspect]
     Active Substance: TECLISTAMAB-CQYV
     Indication: Plasma cell myeloma
     Dosage: MONOTHERAPY?ADMINISTERED IN 4TH LINE OR HIGHER
     Route: 058
     Dates: start: 202301, end: 20240124

REACTIONS (1)
  - Progressive multifocal leukoencephalopathy [Unknown]
